FAERS Safety Report 9495932 (Version 1)
Quarter: 2013Q3

REPORT INFORMATION
  Report Type: Spontaneous
  Country: FR (occurrence: FR)
  Receive Date: 20130903
  Receipt Date: 20130903
  Transmission Date: 20140515
  Serious: Yes (Hospitalization)
  Sender: FDA-Public Use
  Company Number: FR-ROCHE-1267800

PATIENT
  Age: 47 Year
  Sex: Male

DRUGS (13)
  1. ROCEPHINE [Suspect]
     Indication: STAPHYLOCOCCAL SKIN INFECTION
     Dosage: 1 G/10 ML
     Route: 042
     Dates: start: 20121228, end: 20130110
  2. VANCOMYCINE [Suspect]
     Indication: STAPHYLOCOCCAL SKIN INFECTION
     Route: 042
     Dates: start: 201212, end: 20130103
  3. ZYTIGA [Concomitant]
     Dosage: 250 MG
     Route: 048
  4. DEBRIDAT [Concomitant]
     Route: 048
  5. DIFFU K [Concomitant]
     Route: 048
  6. IMOVANE [Concomitant]
     Dosage: 7.5 MG
     Route: 048
  7. INEXIUM [Concomitant]
     Dosage: 20 MG
     Route: 048
  8. MOTILIUM (FRANCE) [Concomitant]
     Dosage: 10 MG
     Route: 048
  9. DUROGESIC [Concomitant]
     Indication: PAIN
     Dosage: 50 MCG/HOUR
     Route: 062
  10. ARANESP [Concomitant]
     Dosage: 30 MCG
     Route: 058
  11. CALCIPARINE [Concomitant]
     Indication: THROMBOSIS PROPHYLAXIS
     Dosage: 5000 IU/0.2 ML
     Route: 058
  12. PERFALGAN [Concomitant]
     Dosage: 3 DF DAILY
     Route: 042
  13. PRIMPERAN (FRANCE) [Concomitant]
     Dosage: 3 DF DAILY IF NEEDED
     Route: 065

REACTIONS (1)
  - Renal failure acute [Recovered/Resolved]
